FAERS Safety Report 13028718 (Version 1)
Quarter: 2016Q4

REPORT INFORMATION
  Report Type: Spontaneous
  Country: JP (occurrence: JP)
  Receive Date: 20161214
  Receipt Date: 20161214
  Transmission Date: 20170207
  Serious: Yes (Hospitalization, Disabling)
  Sender: FDA-Public Use
  Company Number: JP-BIOMARINAP-JP-2016-109844

PATIENT
  Sex: Female
  Weight: 29.7 kg

DRUGS (3)
  1. ALDURAZYME [Suspect]
     Active Substance: LARONIDASE
     Indication: MUCOPOLYSACCHARIDOSIS I
     Dosage: 0.49 MG/KG, UNK
     Route: 042
     Dates: start: 20061207, end: 2009
  2. ALDURAZYME [Suspect]
     Active Substance: LARONIDASE
     Dosage: 0.49 MG/KG, UNK
     Route: 042
     Dates: start: 20090917
  3. ALDURAZYME [Suspect]
     Active Substance: LARONIDASE
     Dosage: 0.49 MG/KG, UNK
     Route: 042
     Dates: start: 20090806

REACTIONS (3)
  - Pharyngitis [Unknown]
  - Cervical myelopathy [Recovered/Resolved with Sequelae]
  - Pyrexia [Recovered/Resolved]

NARRATIVE: CASE EVENT DATE: 20090902
